FAERS Safety Report 22095388 (Version 3)
Quarter: 2024Q3

REPORT INFORMATION
  Report Type: Report from Study
  Country: IN (occurrence: IN)
  Receive Date: 20230314
  Receipt Date: 20240718
  Transmission Date: 20241017
  Serious: Yes (Death)
  Sender: PFIZER
  Company Number: IN-PFIZER INC-PV202300046592

PATIENT
  Age: 66 Year
  Sex: Male
  Weight: 65.4 kg

DRUGS (1)
  1. DACOMITINIB [Suspect]
     Active Substance: DACOMITINIB
     Indication: Adenocarcinoma
     Dosage: 45 MG, 1X/DAY
     Route: 048
     Dates: start: 20190820, end: 20200328

REACTIONS (1)
  - Pyrexia [Fatal]

NARRATIVE: CASE EVENT DATE: 20200328
